FAERS Safety Report 8681135 (Version 3)
Quarter: 2013Q4

REPORT INFORMATION
  Report Type: Spontaneous
  Country: US (occurrence: US)
  Receive Date: 20120725
  Receipt Date: 20131101
  Transmission Date: 20140711
  Serious: No
  Sender: FDA-Public Use
  Company Number: US-009507513-1207USA007667

PATIENT
  Age: 74 Year
  Sex: Female
  Weight: 55.33 kg

DRUGS (9)
  1. COZAAR [Suspect]
     Indication: BLOOD PRESSURE INCREASED
     Dosage: UNK, PRN
     Route: 048
     Dates: start: 201201
  2. COZAAR [Suspect]
     Dosage: UNK
     Dates: start: 20120611
  3. VERAPAMIL [Suspect]
     Indication: BLOOD PRESSURE INCREASED
     Dosage: UNK, PRN
     Dates: start: 201201
  4. VERAPAMIL [Suspect]
     Dosage: UNK
     Dates: start: 20120606, end: 20120608
  5. EUFLEXXA [Suspect]
     Indication: OSTEOARTHRITIS
     Dosage: UNK, ONCE
     Dates: start: 20120518, end: 20120518
  6. EUFLEXXA [Suspect]
     Dosage: UNK, ONCE
     Dates: start: 20120525, end: 20120525
  7. EUFLEXXA [Suspect]
     Dosage: UNK, ONCE
     Dates: start: 20120601, end: 20120601
  8. EUFLEXXA [Suspect]
     Dosage: UNK
  9. VITAMINS (UNSPECIFIED) [Concomitant]

REACTIONS (10)
  - Injection site joint swelling [Not Recovered/Not Resolved]
  - Injection site joint pain [Recovering/Resolving]
  - Balance disorder [Not Recovered/Not Resolved]
  - Hypersomnia [Not Recovered/Not Resolved]
  - Dizziness [Not Recovered/Not Resolved]
  - Blood pressure increased [Recovering/Resolving]
  - Fatigue [Recovering/Resolving]
  - Nausea [Recovering/Resolving]
  - Back pain [Not Recovered/Not Resolved]
  - Constipation [Not Recovered/Not Resolved]
